FAERS Safety Report 6359262-6 (Version None)
Quarter: 2009Q3

REPORT INFORMATION
  Report Type: 
  Country: None (occurrence: None)
  Receive Date: 20090917
  Receipt Date: 20081206
  Transmission Date: 20100115
  Serious: Yes (Other)
  Sender: FDA-Public Use
  Company Number: PHEH2008US11636

PATIENT
  Sex: Female

DRUGS (2)
  1. EXELON [Suspect]
  2. EXELON [Suspect]

REACTIONS (3)
  - ARTHRITIS [None]
  - DIABETES MELLITUS [None]
  - HYPERTENSION [None]
